FAERS Safety Report 8265160 (Version 4)
Quarter: 2013Q3

REPORT INFORMATION
  Report Type: Report from Study
  Country: IE (occurrence: IE)
  Receive Date: 20111128
  Receipt Date: 20130906
  Transmission Date: 20140515
  Serious: Yes (Hospitalization)
  Sender: FDA-Public Use
  Company Number: PHHO2011IE019530

PATIENT
  Age: 76 Year
  Sex: Male
  Weight: 60.4 kg

DRUGS (6)
  1. ALISKIREN [Suspect]
     Indication: CARDIOVASCULAR DISORDER
     Dosage: 300 MG, UNK
     Route: 048
     Dates: start: 20111017, end: 20111108
  2. AMLODIPINE [Suspect]
     Indication: CARDIOVASCULAR DISORDER
     Dosage: 5 MG, UNK
     Route: 048
     Dates: start: 20111017, end: 20111108
  3. NO TREATMENT RECEIVED [Suspect]
     Indication: CARDIOVASCULAR DISORDER
     Dosage: ACTIVE RUN-IN PHASE
  4. ATORVASTATIN [Concomitant]
     Dosage: 20 MG, QD
  5. DUTASTERIDE [Concomitant]
     Dosage: UNK
  6. SELEGILINE [Concomitant]

REACTIONS (1)
  - Chest pain [Recovered/Resolved]
